FAERS Safety Report 19607947 (Version 1)
Quarter: 2021Q3

REPORT INFORMATION
  Report Type: Spontaneous
  Country: KR (occurrence: KR)
  Receive Date: 20210726
  Receipt Date: 20210726
  Transmission Date: 20211014
  Serious: Yes (Death)
  Sender: FDA-Public Use
  Company Number: KR-ROCHE-2873597

PATIENT
  Age: 52 Year
  Sex: Female

DRUGS (1)
  1. ALECTINIB. [Suspect]
     Active Substance: ALECTINIB
     Indication: LUNG NEOPLASM MALIGNANT
     Route: 065

REACTIONS (7)
  - Thrombocytopenia [Fatal]
  - Asthenia [Fatal]
  - Face oedema [Fatal]
  - Confusional state [Fatal]
  - Leukocytosis [Fatal]
  - Bone pain [Fatal]
  - Multiple organ dysfunction syndrome [Fatal]

NARRATIVE: CASE EVENT DATE: 20191206
